FAERS Safety Report 6070431-5 (Version None)
Quarter: 2009Q1

REPORT INFORMATION
  Report Type: 
  Country: None (occurrence: None)
  Receive Date: 20090209
  Receipt Date: 20090202
  Transmission Date: 20090719
  Serious: Yes (Death)
  Sender: FDA-Public Use
  Company Number: PHHY2009DE03384

PATIENT
  Sex: Female
  Weight: 77 kg

DRUGS (3)
  1. FEMARA [Suspect]
     Indication: BREAST CANCER
     Dosage: 2.5 MG, QD
     Route: 048
     Dates: start: 20070326
  2. ATACAND [Concomitant]
     Dosage: UNK
     Dates: start: 20050101
  3. RADIOTHERAPY [Concomitant]
     Dosage: UNK
     Dates: start: 20070228, end: 20070417

REACTIONS (1)
  - MYOCARDIAL INFARCTION [None]
